FAERS Safety Report 14126924 (Version 2)
Quarter: 2017Q4

REPORT INFORMATION
  Report Type: Spontaneous
  Country: JP (occurrence: JP)
  Receive Date: 20171025
  Receipt Date: 20171211
  Transmission Date: 20180321
  Serious: Yes (Hospitalization)
  Sender: FDA-Public Use
  Company Number: JP-ROCHE-2011942

PATIENT
  Age: 51 Year
  Sex: Female
  Weight: 50 kg

DRUGS (8)
  1. CELLCEPT [Suspect]
     Active Substance: MYCOPHENOLATE MOFETIL\MYCOPHENOLATE MOFETIL HYDROCHLORIDE
     Indication: LUPUS NEPHRITIS
     Route: 048
     Dates: start: 20170629, end: 20171010
  2. ASPIRIN. [Concomitant]
     Active Substance: ASPIRIN
     Dosage: DOSAGE IS UNCERTAIN.
     Route: 065
  3. BACTRAMIN [Concomitant]
     Active Substance: SULFAMETHOXAZOLE\TRIMETHOPRIM
     Dosage: DOSAGE IS UNCERTAIN.
     Route: 065
  4. TAKECAB [Concomitant]
     Active Substance: VONOPRAZAN FUMURATE
     Dosage: DOSAGE IS UNCERTAIN.
     Route: 065
  5. WARFARIN [Concomitant]
     Active Substance: WARFARIN
     Dosage: DOSAGE IS UNCERTAIN.
     Route: 065
  6. LIVALO [Concomitant]
     Active Substance: PITAVASTATIN CALCIUM
     Dosage: DOSAGE IS UNCERTAIN.
     Route: 065
  7. AZILVA [Concomitant]
     Active Substance: AZILSARTAN KAMEDOXOMIL
     Dosage: DOSAGE IS UNCERTAIN.
     Route: 065
  8. CONAN [Concomitant]
     Active Substance: QUINAPRIL HYDROCHLORIDE
     Dosage: DOSAGE IS UNCERTAIN.
     Route: 065

REACTIONS (4)
  - Duodenitis [Recovered/Resolved]
  - Anaemia [Recovering/Resolving]
  - Dizziness [Unknown]
  - Dyspnoea [Unknown]

NARRATIVE: CASE EVENT DATE: 20170919
